FAERS Safety Report 5729542-3 (Version None)
Quarter: 2008Q2

REPORT INFORMATION
  Report Type: 
  Country: None (occurrence: None)
  Receive Date: 20080501
  Receipt Date: 20080425
  Transmission Date: 20081010
  Serious: Yes (Death)
  Sender: FDA-Public Use
  Company Number: 163-21880-08020719

PATIENT
  Age: 70 Year
  Sex: Male

DRUGS (2)
  1. REVLIMID [Suspect]
     Indication: MULTIPLE MYELOMA
     Dosage: 10 MEQ, 1 IN  1 D, ORAL; 25 MEQ, 1 IN 1 D, ORAL
     Route: 048
     Dates: start: 20071101, end: 20080101
  2. REVLIMID [Suspect]
     Indication: MULTIPLE MYELOMA
     Dosage: 10 MEQ, 1 IN  1 D, ORAL; 25 MEQ, 1 IN 1 D, ORAL
     Route: 048
     Dates: start: 20061001

REACTIONS (1)
  - REFRACTORY ANAEMIA [None]
